FAERS Safety Report 6034210-7 (Version None)
Quarter: 2009Q1

REPORT INFORMATION
  Report Type: 
  Country: None (occurrence: None)
  Receive Date: 20090112
  Receipt Date: 20090106
  Transmission Date: 20090719
  Serious: Yes (Other)
  Sender: FDA-Public Use
  Company Number: US-WYE-H04972008

PATIENT
  Sex: Female

DRUGS (5)
  1. PREMARIN [Suspect]
     Indication: HORMONE REPLACEMENT THERAPY
  2. PREMARIN [Suspect]
  3. ESTRATEST [Suspect]
  4. PROVERA [Suspect]
     Indication: HORMONE REPLACEMENT THERAPY
  5. MEDROXYPROGESTERONE ACETATE [Suspect]

REACTIONS (1)
  - BREAST CANCER METASTATIC [None]
